FAERS Safety Report 12233426 (Version 5)
Quarter: 2016Q2

REPORT INFORMATION
  Report Type: Report from Study
  Country: IT (occurrence: IT)
  Receive Date: 20160404
  Receipt Date: 20160506
  Transmission Date: 20160815
  Serious: Yes (Hospitalization, Other)
  Sender: FDA-Public Use
  Company Number: IT-AMGEN-ITANI2016039588

PATIENT
  Age: 67 Year
  Sex: Male
  Weight: 59 kg

DRUGS (4)
  1. DEXAMETHASONE. [Concomitant]
     Active Substance: DEXAMETHASONE
     Dosage: 40 MG, QWK
     Route: 042
     Dates: start: 20160126, end: 20160315
  2. CARFILZOMIB [Suspect]
     Active Substance: CARFILZOMIB
     Indication: PLASMA CELL MYELOMA
     Dosage: 27 MG/M2, TWICE WEEKLY FOR THREE WEEKS AT MONTH
     Route: 042
     Dates: start: 20160126, end: 20160309
  3. CARFILZOMIB [Suspect]
     Active Substance: CARFILZOMIB
     Dosage: UNK
     Route: 065
     Dates: start: 20160418
  4. REVLIMID [Concomitant]
     Active Substance: LENALIDOMIDE
     Dosage: 25 MG, 28 DAYS A MONTH
     Route: 048
     Dates: start: 20160126, end: 20160315

REACTIONS (2)
  - Bronchiolitis [Recovered/Resolved]
  - Dyspnoea [Recovered/Resolved]

NARRATIVE: CASE EVENT DATE: 20160322
